FAERS Safety Report 4926116-9 (Version None)
Quarter: 2006Q1

REPORT INFORMATION
  Report Type: 
  Country: None (occurrence: None)
  Receive Date: 20060228
  Receipt Date: 20050822
  Transmission Date: 20060701
  Serious: No
  Sender: FDA-Public Use
  Company Number: US-GLAXOSMITHKLINE-A0571224A

PATIENT
  Age: 50 Year
  Sex: Female

DRUGS (5)
  1. LAMICTAL [Suspect]
     Indication: BIPOLAR DISORDER
     Dosage: 50MG TWICE PER DAY
     Route: 048
  2. EFFEXOR [Concomitant]
  3. NEXIUM [Concomitant]
  4. EVISTA [Concomitant]
  5. VITAMINS [Concomitant]

REACTIONS (1)
  - RASH ERYTHEMATOUS [None]
